FAERS Safety Report 5802917-X (Version None)
Quarter: 2008Q2

REPORT INFORMATION
  Report Type: 
  Country: None (occurrence: None)
  Receive Date: 20080627
  Receipt Date: 20080218
  Transmission Date: 20081010
  Serious: Yes (Disabling)
  Sender: FDA-Public Use
  Company Number: PHEH2008US01449

PATIENT
  Age: 60 Year
  Sex: Female

DRUGS (4)
  1. RECLAST [Suspect]
     Indication: OSTEOPOROSIS
     Dosage: 5 MG, ONCE PER YEAR, INTRAVENOUS
     Route: 042
     Dates: start: 20080128, end: 20080128
  2. CELEBREX [Concomitant]
  3. DOXYCYCLINE [Concomitant]
  4. LIPITOR [Concomitant]

REACTIONS (5)
  - BACK PAIN [None]
  - INFUSION SITE BRUISING [None]
  - MYALGIA [None]
  - TENDERNESS [None]
  - WHEEZING [None]
